FAERS Safety Report 5480071-4 (Version None)
Quarter: 2007Q4

REPORT INFORMATION
  Report Type: 
  Country: None (occurrence: None)
  Receive Date: 20071008
  Receipt Date: 20070928
  Transmission Date: 20080405
  Serious: Yes (Other)
  Sender: FDA-Public Use
  Company Number: US-PFIZER INC-2007082126

PATIENT
  Sex: Male
  Weight: 91.9 kg

DRUGS (4)
  1. LIPITOR [Suspect]
     Indication: BLOOD CHOLESTEROL INCREASED
     Dates: start: 19990101, end: 20070101
  2. ZOCOR [Concomitant]
  3. ISOSORBIDE DINITRATE [Concomitant]
  4. PLAVIX [Concomitant]

REACTIONS (3)
  - BLOOD CHOLESTEROL INCREASED [None]
  - EJECTION FRACTION DECREASED [None]
  - MUSCLE SPASMS [None]
